FAERS Safety Report 20688176 (Version 3)
Quarter: 2022Q3

REPORT INFORMATION
  Report Type: Spontaneous
  Country: US (occurrence: None)
  Receive Date: 20220408
  Receipt Date: 20220722
  Transmission Date: 20221027
  Serious: No
  Sender: FDA-Public Use
  Company Number: US-ROCHE-3064012

PATIENT
  Sex: Male

DRUGS (3)
  1. OCREVUS [Suspect]
     Active Substance: OCRELIZUMAB
     Indication: Multiple sclerosis
     Dosage: 300MG/ 10ML
     Route: 042
     Dates: start: 202104
  2. OCREVUS [Suspect]
     Active Substance: OCRELIZUMAB
     Dosage: 300MG/ 10ML
     Route: 042
     Dates: start: 20210812
  3. OCREVUS [Suspect]
     Active Substance: OCRELIZUMAB
     Route: 042
     Dates: start: 202204

REACTIONS (2)
  - Vision blurred [Recovered/Resolved]
  - Tension [Unknown]
